FAERS Safety Report 5777790-9 (Version None)
Quarter: 2008Q2

REPORT INFORMATION
  Report Type: 
  Country: None (occurrence: None)
  Receive Date: 20080618
  Receipt Date: 20080606
  Transmission Date: 20081010
  Serious: Yes (Hospitalization)
  Sender: FDA-Public Use
  Company Number: JP-PFIZER INC-2008049404

PATIENT
  Age: 71 Year
  Sex: Male

DRUGS (2)
  1. CAMPTO [Suspect]
     Indication: RECTAL CANCER
     Route: 042
     Dates: start: 20080519, end: 20080519
  2. TEGAFUR/GIMERACIL/OTERACIL POTASSIUM [Suspect]
     Indication: RECTAL CANCER
     Dosage: DAILY DOSE:100MG
     Route: 048
     Dates: start: 20080519, end: 20080530

REACTIONS (1)
  - STEVENS-JOHNSON SYNDROME [None]
